FAERS Safety Report 19657892 (Version 2)
Quarter: 2021Q3

REPORT INFORMATION
  Report Type: Spontaneous
  Country: CN (occurrence: CN)
  Receive Date: 20210804
  Receipt Date: 20210928
  Transmission Date: 20211014
  Serious: Yes (Other)
  Sender: FDA-Public Use
  Company Number: CN-LUPIN PHARMACEUTICALS INC.-2021-13684

PATIENT
  Age: 58 Year
  Sex: Male

DRUGS (10)
  1. GABAPENTIN. [Suspect]
     Active Substance: GABAPENTIN
     Indication: HYPERAESTHESIA
  2. OXYCODONE HYDROCHLORIDE TABLETS [Suspect]
     Active Substance: OXYCODONE HYDROCHLORIDE
     Indication: CANCER PAIN
     Dosage: 40 MILLIGRAM (CONTROLLED?RELEASE TABLET)
     Route: 048
  3. MORPHINE SULPHATE [Suspect]
     Active Substance: MORPHINE SULFATE
     Indication: CANCER PAIN
     Dosage: 30 MILLIGRAM (SUSTAINED RELEASE TABLET)
     Route: 048
  4. GABAPENTIN. [Suspect]
     Active Substance: GABAPENTIN
     Indication: PARADOXICAL DRUG REACTION
     Dosage: 1.5 MILLIGRAM, QD
     Route: 065
  5. PREGABALIN. [Suspect]
     Active Substance: PREGABALIN
     Indication: HYPERAESTHESIA
  6. MORPHINE SULPHATE [Suspect]
     Active Substance: MORPHINE SULFATE
     Dosage: 30 MILLIGRAM (TABLET)
     Route: 048
  7. GABAPENTIN. [Suspect]
     Active Substance: GABAPENTIN
     Indication: ALLODYNIA
  8. FENTANYL. [Suspect]
     Active Substance: FENTANYL
     Indication: CANCER PAIN
     Dosage: 4.2 MILLIGRAM
     Route: 062
  9. PREGABALIN. [Suspect]
     Active Substance: PREGABALIN
     Indication: PARADOXICAL DRUG REACTION
     Dosage: 300 MILLIGRAM, QD
     Route: 065
  10. PREGABALIN. [Suspect]
     Active Substance: PREGABALIN
     Indication: ALLODYNIA

REACTIONS (5)
  - Allodynia [Recovering/Resolving]
  - Off label use [Unknown]
  - Hyperaesthesia [Recovering/Resolving]
  - Paradoxical drug reaction [Recovering/Resolving]
  - Drug ineffective for unapproved indication [Unknown]
